FAERS Safety Report 5377330-2 (Version None)
Quarter: 2007Q3

REPORT INFORMATION
  Report Type: 
  Country: None (occurrence: None)
  Receive Date: 20070703
  Receipt Date: 20070626
  Transmission Date: 20080115
  Serious: Yes (Hospitalization)
  Sender: FDA-Public Use
  Company Number: US-SANOFI-SYNTHELABO-F01200700520

PATIENT
  Sex: Female

DRUGS (10)
  1. KYTRIL [Concomitant]
     Dates: start: 20070208
  2. PERCOCET-5 [Concomitant]
  3. IRON [Concomitant]
     Dates: start: 20070208
  4. LOVENOX [Concomitant]
     Dates: start: 20070208
  5. PROZAC [Concomitant]
     Dates: start: 20070208
  6. ERLOTINIB [Suspect]
     Dosage: 150 MG
     Route: 048
     Dates: start: 20070126
  7. FLUOROURACIL [Suspect]
     Dosage: 4296 MG/M2
     Route: 042
     Dates: start: 20070320, end: 20070320
  8. LEUCOVORIN CALCIUM [Suspect]
     Dosage: 716 MG
     Route: 042
     Dates: start: 20070320, end: 20070320
  9. BEVACIZUMAB [Suspect]
     Dosage: 152 MG
     Route: 042
     Dates: start: 20070320, end: 20070320
  10. OXALIPLATIN [Suspect]
     Indication: COLON CANCER
     Dosage: 152 MG
     Route: 042

REACTIONS (1)
  - NEPHROLITHIASIS [None]
